FAERS Safety Report 12658911 (Version 1)
Quarter: 2016Q3

REPORT INFORMATION
  Report Type: Spontaneous
  Country: US (occurrence: None)
  Receive Date: 20160816
  Receipt Date: 20160816
  Transmission Date: 20161109
  Serious: Yes (Other)
  Sender: FDA-Public Use
  Company Number: None

PATIENT
  Age: 58 Year
  Sex: Male
  Weight: 88.45 kg

DRUGS (4)
  1. ZALIAIX [Concomitant]
  2. FANAPT [Suspect]
     Active Substance: ILOPERIDONE
     Indication: BIPOLAR I DISORDER
     Dosage: 2MG  AM/ 2 MG PM  2MG 2X DAILY MOUTH
     Route: 048
     Dates: start: 201604
  3. XANAX [Concomitant]
     Active Substance: ALPRAZOLAM
  4. FLOWMAX [Concomitant]

REACTIONS (6)
  - Dry throat [None]
  - Urinary incontinence [None]
  - Dyskinesia [None]
  - Somnolence [None]
  - Feeling abnormal [None]
  - Arthralgia [None]

NARRATIVE: CASE EVENT DATE: 20160515
